FAERS Safety Report 4703270-5 (Version None)
Quarter: 2005Q2

REPORT INFORMATION
  Report Type: 
  Country: None (occurrence: None)
  Receive Date: 20050629
  Receipt Date: 20050310
  Transmission Date: 20051028
  Serious: Yes (Hospitalization)
  Sender: FDA-Public Use
  Company Number: US-MERCK-0503USA02087

PATIENT
  Age: 53 Year
  Sex: Male
  Weight: 82 kg

DRUGS (8)
  1. VIOXX [Suspect]
     Indication: ARTHRITIS
     Route: 048
     Dates: start: 20010201, end: 20020601
  2. FLOMAX [Concomitant]
     Route: 065
  3. ANDRODERM [Concomitant]
     Route: 065
  4. CEDAX [Concomitant]
     Route: 065
  5. CLARITIN [Concomitant]
     Route: 065
  6. DIPROLENE [Concomitant]
     Route: 065
  7. MUCO-FEN LA [Concomitant]
     Route: 065
  8. PLAVIX [Concomitant]
     Route: 065

REACTIONS (13)
  - BURSITIS [None]
  - CHONDROMALACIA [None]
  - COLONIC POLYP [None]
  - CORONARY ARTERY DISEASE [None]
  - DIVERTICULUM [None]
  - DYSLIPIDAEMIA [None]
  - INTERVERTEBRAL DISC PROTRUSION [None]
  - LIGAMENT INJURY [None]
  - MENISCUS LESION [None]
  - MYOCARDIAL INFARCTION [None]
  - ROTATOR CUFF SYNDROME [None]
  - SINUSITIS [None]
  - TOE DEFORMITY [None]
